FAERS Safety Report 25024429 (Version 1)
Quarter: 2025Q1

REPORT INFORMATION
  Report Type: Spontaneous
  Country: US (occurrence: None)
  Receive Date: 20250228
  Receipt Date: 20250228
  Transmission Date: 20250409
  Serious: Yes (Hospitalization)
  Sender: FDA-CTU
  Company Number: None

PATIENT
  Age: 88 Year
  Sex: Male
  Weight: 90 kg

DRUGS (3)
  1. ELIQUIS [Suspect]
     Active Substance: APIXABAN
     Indication: Atrial fibrillation
     Dosage: 2.50 MG TWICE A DAY ORAL ?
     Route: 048
     Dates: start: 20200608
  2. ASPIRIN [Suspect]
     Active Substance: ASPIRIN
     Indication: Cardiovascular disorder
     Dosage: 81.00 MG DAILY ORAL ?
     Route: 048
  3. ASPIRIN [Suspect]
     Active Substance: ASPIRIN
     Indication: Surgery

REACTIONS (2)
  - Upper gastrointestinal haemorrhage [None]
  - Mental status changes [None]

NARRATIVE: CASE EVENT DATE: 20241024
